FAERS Safety Report 10680242 (Version 3)
Quarter: 2016Q3

REPORT INFORMATION
  Report Type: Spontaneous
  Country: US (occurrence: US)
  Receive Date: 20141229
  Receipt Date: 20160812
  Transmission Date: 20161109
  Serious: Yes (Death, Hospitalization)
  Sender: FDA-Public Use
  Company Number: US-SA-2013SA122575

PATIENT
  Age: 50 Year
  Sex: Female
  Weight: 63.5 kg

DRUGS (26)
  1. PLAVIX [Suspect]
     Active Substance: CLOPIDOGREL BISULFATE
     Indication: ARTERIAL OCCLUSIVE DISEASE
     Route: 065
     Dates: start: 2006
  2. ASPIRIN. [Concomitant]
     Active Substance: ASPIRIN
     Route: 065
  3. PLAVIX [Suspect]
     Active Substance: CLOPIDOGREL BISULFATE
     Indication: ARTERIAL OCCLUSIVE DISEASE
     Dosage: FIRST DATE:2003 OR 2005
     Route: 065
     Dates: start: 2002, end: 2005
  4. EPTIFIBATIDE. [Concomitant]
     Active Substance: EPTIFIBATIDE
  5. TIROFIBAN [Concomitant]
     Active Substance: TIROFIBAN
  6. CIMETIDINE [Concomitant]
     Active Substance: CIMETIDINE
  7. ZOCOR [Concomitant]
     Active Substance: SIMVASTATIN
  8. PREVACID [Concomitant]
     Active Substance: LANSOPRAZOLE
  9. ACIPHEX [Concomitant]
     Active Substance: RABEPRAZOLE SODIUM
  10. ZEGERID [Concomitant]
     Active Substance: OMEPRAZOLE\SODIUM BICARBONATE
  11. TYLENOL [Concomitant]
     Active Substance: ACETAMINOPHEN
  12. PLAVIX [Suspect]
     Active Substance: CLOPIDOGREL BISULFATE
     Indication: STENT PLACEMENT
     Dosage: FIRST DATE:2003 OR 2005
     Route: 065
     Dates: start: 2002, end: 2005
  13. PROTONIX [Concomitant]
     Active Substance: PANTOPRAZOLE SODIUM
  14. NEXIUM [Concomitant]
     Active Substance: ESOMEPRAZOLE MAGNESIUM
  15. PLAVIX [Suspect]
     Active Substance: CLOPIDOGREL BISULFATE
     Indication: ARTERIAL OCCLUSIVE DISEASE
     Route: 048
  16. PLAVIX [Suspect]
     Active Substance: CLOPIDOGREL BISULFATE
     Indication: STENT PLACEMENT
     Route: 048
  17. AGGRENOX [Concomitant]
     Active Substance: ASPIRIN\DIPYRIDAMOLE
  18. ZANTAC [Concomitant]
     Active Substance: RANITIDINE HYDROCHLORIDE
  19. PLAVIX [Suspect]
     Active Substance: CLOPIDOGREL BISULFATE
     Indication: STENT PLACEMENT
     Route: 065
     Dates: start: 2006
  20. ASPIRIN. [Concomitant]
     Active Substance: ASPIRIN
     Route: 065
     Dates: start: 2004
  21. BRILINTA [Concomitant]
     Active Substance: TICAGRELOR
  22. PRILOSEC [Concomitant]
     Active Substance: OMEPRAZOLE MAGNESIUM
  23. ABCIXIMAB [Concomitant]
     Active Substance: ABCIXIMAB
  24. TICLOPIDINE [Concomitant]
     Active Substance: TICLOPIDINE
  25. EFFIENT [Concomitant]
     Active Substance: PRASUGREL HYDROCHLORIDE
  26. LIPITOR [Concomitant]
     Active Substance: ATORVASTATIN CALCIUM

REACTIONS (12)
  - Intermittent claudication [Unknown]
  - Gastrointestinal haemorrhage [Fatal]
  - Impaired healing [Unknown]
  - Pleurisy [Unknown]
  - Haemoptysis [Unknown]
  - Anaemia [Unknown]
  - Respiratory failure [Unknown]
  - Pneumonia [Unknown]
  - Syncope [Unknown]
  - Dyspnoea [Unknown]
  - Melaena [Unknown]
  - Angina unstable [Unknown]

NARRATIVE: CASE EVENT DATE: 200905
